FAERS Safety Report 6837233-0 (Version None)
Quarter: 2010Q3

REPORT INFORMATION
  Report Type: 
  Country: None (occurrence: None)
  Receive Date: 20100713
  Receipt Date: 20070508
  Transmission Date: 20110219
  Serious: No
  Sender: FDA-Public Use
  Company Number: US-PFIZER INC-2007038140

PATIENT
  Sex: Female
  Weight: 44.7 kg

DRUGS (3)
  1. CHANTIX [Suspect]
     Indication: SMOKING CESSATION THERAPY
     Route: 048
     Dates: start: 20070423
  2. VITAMINS [Concomitant]
  3. CALCIUM [Concomitant]

REACTIONS (2)
  - ABDOMINAL PAIN [None]
  - IRRITABILITY [None]
